FAERS Safety Report 10900418 (Version 1)
Quarter: 2015Q1

REPORT INFORMATION
  Report Type: Spontaneous
  Country: US (occurrence: US)
  Receive Date: 20150310
  Receipt Date: 20150310
  Transmission Date: 20150721
  Serious: Yes (Other)
  Sender: FDA-Public Use
  Company Number: US-BEH-2015049334

PATIENT
  Sex: Male
  Weight: 127 kg

DRUGS (25)
  1. VITAMIN D3 [Concomitant]
     Active Substance: CHOLECALCIFEROL
  2. FLOMAX [Concomitant]
     Active Substance: TAMSULOSIN HYDROCHLORIDE
  3. PRIVIGEN [Suspect]
     Active Substance: HUMAN IMMUNOGLOBULIN G
     Indication: MULTIPLE SCLEROSIS
     Dosage: 10 GM VIAL; 50 GM AS DIRECTED
     Route: 042
  4. MIRALAX [Concomitant]
     Active Substance: POLYETHYLENE GLYCOL 3350
  5. ATENOLOL. [Concomitant]
     Active Substance: ATENOLOL
  6. LORTAB [Concomitant]
     Active Substance: ACETAMINOPHEN\HYDROCODONE BITARTRATE
  7. KLONOPIN [Concomitant]
     Active Substance: CLONAZEPAM
  8. ARICEPT [Concomitant]
     Active Substance: DONEPEZIL HYDROCHLORIDE
  9. LAMICTAL [Concomitant]
     Active Substance: LAMOTRIGINE
  10. CYMBALTA [Concomitant]
     Active Substance: DULOXETINE HYDROCHLORIDE
  11. GEODON [Concomitant]
     Active Substance: ZIPRASIDONE HYDROCHLORIDE\ZIPRASIDONE MESYLATE
  12. BACLOFEN. [Concomitant]
     Active Substance: BACLOFEN
  13. IBUPROFEN. [Concomitant]
     Active Substance: IBUPROFEN
  14. PRIVIGEN [Suspect]
     Active Substance: HUMAN IMMUNOGLOBULIN G
     Dosage: 20 GM VIAL; 50 GM AS DIRECTED
     Route: 042
  15. ATENOLOL. [Concomitant]
     Active Substance: ATENOLOL
  16. REBIF [Concomitant]
     Active Substance: INTERFERON BETA-1A
  17. MULTIVITAMIN [Concomitant]
     Active Substance: VITAMINS
  18. LORAZEPAM. [Concomitant]
     Active Substance: LORAZEPAM
  19. LYRICA [Concomitant]
     Active Substance: PREGABALIN
  20. XANAX [Concomitant]
     Active Substance: ALPRAZOLAM
  21. AMBIEN PAK [Concomitant]
  22. FISH OIL [Concomitant]
     Active Substance: FISH OIL
  23. PREVACID [Concomitant]
     Active Substance: LANSOPRAZOLE
  24. KLONOPIN [Concomitant]
     Active Substance: CLONAZEPAM
  25. LISINOPRIL. [Concomitant]
     Active Substance: LISINOPRIL

REACTIONS (1)
  - Hepatic enzyme increased [Unknown]
